FAERS Safety Report 20259339 (Version 1)
Quarter: 2021Q4

REPORT INFORMATION
  Report Type: Spontaneous
  Country: CA (occurrence: CA)
  Receive Date: 20211230
  Receipt Date: 20211230
  Transmission Date: 20220304
  Serious: Yes (Other)
  Sender: FDA-Public Use
  Company Number: CA-NAPPMUNDI-GBR-2021-0093860

PATIENT
  Age: 56 Year
  Sex: Female

DRUGS (3)
  1. MORPHINE SULFATE [Suspect]
     Active Substance: MORPHINE SULFATE
     Indication: Product used for unknown indication
     Dosage: UNK
     Route: 065
  2. ZOSTAVAX [Suspect]
     Active Substance: VARICELLA-ZOSTER VIRUS STRAIN OKA/MERCK LIVE ANTIGEN
     Indication: Immunisation
     Dosage: UNK
     Route: 065
  3. MELOXICAM [Concomitant]
     Active Substance: MELOXICAM
     Dosage: 15 MG,1 EVERY 1DAY
     Route: 065

REACTIONS (2)
  - Inflammation [Unknown]
  - Pneumonitis [Unknown]
